FAERS Safety Report 6452668-6 (Version None)
Quarter: 2009Q4

REPORT INFORMATION
  Report Type: 
  Country: None (occurrence: None)
  Receive Date: 20091116
  Receipt Date: 20091104
  Transmission Date: 20100525
  Serious: Yes (Life-Threatening, Hospitalization, Other)
  Sender: FDA-Public Use
  Company Number: 2009009125

PATIENT
  Age: 69 Year
  Sex: Male

DRUGS (3)
  1. TREANDA [Suspect]
     Indication: CHRONIC LYMPHOCYTIC LEUKAEMIA
     Dosage: (90 MG/M2,CYCLICAL), INTRAVENOUS DRIP
     Route: 041
     Dates: start: 20090707
  2. SEPTRA [Concomitant]
  3. FOLIC ACID [Concomitant]

REACTIONS (3)
  - HYPERHIDROSIS [None]
  - LYMPHADENOPATHY [None]
  - PANCYTOPENIA [None]
